FAERS Safety Report 4873637-3 (Version None)
Quarter: 2005Q4

REPORT INFORMATION
  Report Type: 
  Country: None (occurrence: None)
  Receive Date: 20051201
  Receipt Date: 20050808
  Transmission Date: 20060501
  Serious: No
  Sender: FDA-Public Use
  Company Number: 2005PV000907

PATIENT
  Age: 65 Year
  Sex: Female
  Weight: 77.1115 kg

DRUGS (14)
  1. BYETTA [Suspect]
     Indication: DIABETES MELLITUS NON-INSULIN-DEPENDENT
     Dosage: 5 MCG, BID, SC
     Route: 058
     Dates: start: 20050801
  2. PLAVIX [Concomitant]
  3. GLUCOTROL [Concomitant]
  4. GLUCOPHAGE - SLOW [Concomitant]
  5. RELEASE [Concomitant]
  6. ZOCOR [Concomitant]
  7. DESYREL [Concomitant]
  8. MAXZIDE [Concomitant]
  9. NORVASC [Concomitant]
  10. ASPIRIN [Concomitant]
  11. ZOLOFT [Concomitant]
  12. TENORMIN [Concomitant]
  13. LORATADINE [Concomitant]
  14. TYLENOL (CAPLET) [Concomitant]

REACTIONS (5)
  - ABDOMINAL DISTENSION [None]
  - ANOREXIA [None]
  - BLOOD GLUCOSE DECREASED [None]
  - DIARRHOEA [None]
  - NAUSEA [None]
